FAERS Safety Report 9373282 (Version 2)
Quarter: 2013Q3

REPORT INFORMATION
  Report Type: Spontaneous
  Country: US (occurrence: US)
  Receive Date: 20130627
  Receipt Date: 20130709
  Transmission Date: 20140515
  Serious: Yes (Other)
  Sender: FDA-Public Use
  Company Number: CHPA2013US010223

PATIENT
  Sex: Male

DRUGS (1)
  1. DESENEX PRESCRIPTIONSTRENGTH ANTIFPOWDER [Suspect]
     Indication: PROPHYLAXIS
     Dosage: ONCE A DAY, AFTER SHOWER
     Route: 061
     Dates: start: 1944

REACTIONS (6)
  - Colitis ulcerative [Recovering/Resolving]
  - Prostatomegaly [Recovering/Resolving]
  - Blood cholesterol increased [Recovering/Resolving]
  - Glucose tolerance impaired [Recovering/Resolving]
  - Blister [Not Recovered/Not Resolved]
  - Off label use [Unknown]
